FAERS Safety Report 21071744 (Version 1)
Quarter: 2022Q3

REPORT INFORMATION
  Report Type: Spontaneous
  Country: US (occurrence: US)
  Receive Date: 20220712
  Receipt Date: 20220712
  Transmission Date: 20221027
  Serious: No
  Sender: FDA-Public Use
  Company Number: US-PFIZER INC-202200943353

PATIENT

DRUGS (1)
  1. SODIUM ACETATE [Suspect]
     Active Substance: SODIUM ACETATE
     Dosage: UNK

REACTIONS (1)
  - Therapy interrupted [Unknown]
